FAERS Safety Report 8607183-8 (Version None)
Quarter: 2012Q3

REPORT INFORMATION
  Report Type: 
  Country: None (occurrence: None)
  Receive Date: 20120821
  Receipt Date: 20120814
  Transmission Date: 20120928
  Serious: No
  Sender: FDA-Public Use
  Company Number: US-BIOGENIDEC-2012BI031508

PATIENT
  Sex: Male

DRUGS (4)
  1. TYSABRI [Suspect]
     Route: 042
     Dates: start: 20061023
  2. TYSABRI [Suspect]
     Indication: MULTIPLE SCLEROSIS
     Route: 042
     Dates: start: 20050223, end: 20050223
  3. AVONEX [Concomitant]
     Indication: MULTIPLE SCLEROSIS
     Route: 030
     Dates: start: 20011026, end: 20050223
  4. AVONEX [Concomitant]
     Route: 030
     Dates: start: 20050323, end: 20051226

REACTIONS (1)
  - MALAISE [None]
